FAERS Safety Report 6930072-1 (Version None)
Quarter: 2010Q3

REPORT INFORMATION
  Report Type: 
  Country: None (occurrence: None)
  Receive Date: 20100818
  Receipt Date: 20100811
  Transmission Date: 20110219
  Serious: Yes (Other)
  Sender: FDA-Public Use
  Company Number: CA-BAYER-201030305NA

PATIENT
  Age: 38 Year
  Sex: Female
  Weight: 54 kg

DRUGS (3)
  1. CIPRO XR [Suspect]
     Indication: PRODUCT USED FOR UNKNOWN INDICATION
     Dosage: TOTAL DAILY DOSE: 500 MG  UNIT DOSE: 500 MG
     Route: 048
  2. RATIO-SALBUTAMOL [Concomitant]
  3. SYMBICORT [Concomitant]
     Dosage: 200 TURBUHALER
     Route: 055

REACTIONS (9)
  - ANXIETY [None]
  - BEDRIDDEN [None]
  - CONFUSIONAL STATE [None]
  - CONVULSION [None]
  - JUDGEMENT IMPAIRED [None]
  - LOSS OF CONSCIOUSNESS [None]
  - MUSCULAR WEAKNESS [None]
  - SOMNOLENCE [None]
  - VISION BLURRED [None]
